FAERS Safety Report 7314810-4 (Version None)
Quarter: 2011Q1

REPORT INFORMATION
  Report Type: 
  Country: None (occurrence: None)
  Receive Date: 20110225
  Receipt Date: 20101215
  Transmission Date: 20110831
  Serious: No
  Sender: FDA-Public Use
  Company Number: US-MYLANLABS-2010S1023076

PATIENT
  Age: 19 Year
  Sex: Male
  Weight: 136 kg

DRUGS (5)
  1. AMNESTEEM [Suspect]
     Route: 048
     Dates: end: 20101213
  2. AMNESTEEM [Suspect]
     Route: 048
     Dates: end: 20101213
  3. PREDNISONE [Concomitant]
  4. AMNESTEEM [Suspect]
     Indication: ACNE CYSTIC
     Route: 048
     Dates: start: 20100913, end: 20101213
  5. AMNESTEEM [Suspect]
     Indication: HIDRADENITIS
     Route: 048
     Dates: start: 20100913, end: 20101213

REACTIONS (3)
  - DRUG INEFFECTIVE [None]
  - HIDRADENITIS [None]
  - ACNE [None]
